FAERS Safety Report 13849079 (Version 1)
Quarter: 2017Q3

REPORT INFORMATION
  Report Type: Spontaneous
  Country: IT (occurrence: IT)
  Receive Date: 20170809
  Receipt Date: 20170809
  Transmission Date: 20171127
  Serious: Yes (Life-Threatening, Hospitalization)
  Sender: FDA-Public Use
  Company Number: IT-AUROBINDO PHARMA LTD, UK-AUR-APL-2014-07071

PATIENT
  Age: 72 Year
  Sex: Male

DRUGS (11)
  1. CEFTRIAXONE DISODIUM [Concomitant]
     Active Substance: CEFTRIAXONE
     Indication: PRODUCT USED FOR UNKNOWN INDICATION
     Dosage: UNK
     Route: 065
     Dates: start: 20130301, end: 20130305
  2. ACICLOVIR [Concomitant]
     Active Substance: ACYCLOVIR
     Indication: PRODUCT USED FOR UNKNOWN INDICATION
     Dosage: UNK
     Route: 065
     Dates: start: 20130405, end: 20130502
  3. ALLOPURINOL. [Suspect]
     Active Substance: ALLOPURINOL
     Indication: TUMOUR LYSIS SYNDROME
     Dosage: 300 MG, DAILY
     Route: 048
     Dates: start: 20121228, end: 20130502
  4. FILGRASTIM [Suspect]
     Active Substance: FILGRASTIM
     Indication: PRODUCT USED FOR UNKNOWN INDICATION
     Route: 065
  5. FLUCONAZOLE. [Suspect]
     Active Substance: FLUCONAZOLE
     Indication: FEBRILE NEUTROPENIA
     Dosage: 400 MG, DAILY
     Route: 048
     Dates: end: 20130505
  6. LANSOPRAZOLE. [Suspect]
     Active Substance: LANSOPRAZOLE
     Indication: PRODUCT USED FOR UNKNOWN INDICATION
     Route: 065
  7. RITUXIMAB. [Concomitant]
     Active Substance: RITUXIMAB
     Indication: PRODUCT USED FOR UNKNOWN INDICATION
     Dosage: UNK
     Route: 058
     Dates: start: 20121228, end: 20130508
  8. OMEPRAZOLE. [Concomitant]
     Active Substance: OMEPRAZOLE
     Indication: PRODUCT USED FOR UNKNOWN INDICATION
     Dosage: UNK
     Route: 065
     Dates: start: 20121228, end: 20130502
  9. LEVOFLOXACIN 500MG [Suspect]
     Active Substance: LEVOFLOXACIN
     Indication: PYREXIA
     Dosage: 500 MG, ONCE A DAY
     Route: 048
     Dates: start: 20130308, end: 20130322
  10. HEPARIN SODIUM. [Concomitant]
     Active Substance: HEPARIN SODIUM
     Indication: PRODUCT USED FOR UNKNOWN INDICATION
     Route: 065
  11. PREDNISONE. [Suspect]
     Active Substance: PREDNISONE
     Indication: PRODUCT USED FOR UNKNOWN INDICATION
     Route: 065

REACTIONS (5)
  - Pyrexia [Unknown]
  - Hepatic enzyme increased [Recovered/Resolved]
  - Pulmonary embolism [Recovered/Resolved]
  - Cough [Unknown]
  - Febrile neutropenia [Recovered/Resolved]

NARRATIVE: CASE EVENT DATE: 20130323
